FAERS Safety Report 7066078-4 (Version None)
Quarter: 2010Q4

REPORT INFORMATION
  Report Type: 
  Country: None (occurrence: None)
  Receive Date: 20101027
  Receipt Date: 20100618
  Transmission Date: 20110411
  Serious: No
  Sender: FDA-Public Use
  Company Number: HQWYE305321JUL04

PATIENT
  Sex: Female

DRUGS (3)
  1. PREMPRO [Suspect]
  2. ESTRACE [Suspect]
  3. PREMARIN [Suspect]

REACTIONS (3)
  - CARDIAC DISORDER [None]
  - CHEST PAIN [None]
  - DYSARTHRIA [None]
